FAERS Safety Report 4516672-7 (Version None)
Quarter: 2004Q4

REPORT INFORMATION
  Report Type: 
  Country: None (occurrence: None)
  Receive Date: 20041130
  Receipt Date: 20041112
  Transmission Date: 20050328
  Serious: Yes (Hospitalization)
  Sender: FDA-Public Use
  Company Number: ZONI002045

PATIENT
  Age: 54 Year
  Sex: Male

DRUGS (4)
  1. EXCEGRAN (ZONISAMIDE) [Suspect]
     Indication: POST-TRAUMATIC EPILEPSY
     Dosage: 30 MG , 1 IN 1 D, ORAL
     Route: 048
     Dates: start: 20040925, end: 20041027
  2. LOXONIN (LOXOPROFEN SODIUM) [Concomitant]
  3. ULGUT (BENEXATE  HYDROCHLORIDE) [Concomitant]
  4. PRIMPERAN TAB [Concomitant]

REACTIONS (4)
  - CONJUNCTIVAL HYPERAEMIA [None]
  - ERYTHEMA [None]
  - STEVENS-JOHNSON SYNDROME [None]
  - STOMATITIS [None]
